FAERS Safety Report 4428552-6 (Version None)
Quarter: 2004Q3

REPORT INFORMATION
  Report Type: 
  Country: None (occurrence: None)
  Receive Date: 20040812
  Receipt Date: 20040729
  Transmission Date: 20050211
  Serious: Yes (Other)
  Sender: FDA-Public Use
  Company Number: 200410622BCA

PATIENT
  Age: 57 Year
  Sex: Female
  Weight: 53.5 kg

DRUGS (2)
  1. GAMUNEX [Suspect]
     Dosage: 53.5 G, INTRAVENOUS
     Route: 042
     Dates: start: 20040630
  2. ATIVAN [Concomitant]

REACTIONS (2)
  - HYPOAESTHESIA ORAL [None]
  - TONGUE OEDEMA [None]
